FAERS Safety Report 21882988 (Version 1)
Quarter: 2023Q1

REPORT INFORMATION
  Report Type: Spontaneous
  Country: IT (occurrence: IT)
  Receive Date: 20230119
  Receipt Date: 20230119
  Transmission Date: 20230417
  Serious: Yes (Hospitalization, Other)
  Sender: FDA-Public Use
  Company Number: IT-MINISAL02-901618

PATIENT
  Age: 40 Year
  Sex: Male

DRUGS (8)
  1. CITALOPRAM [Suspect]
     Active Substance: CITALOPRAM HYDROBROMIDE
     Indication: Product used for unknown indication
     Dosage: 230 TABLETS OF QUETIAPINE 150 MG + 50 BLISTERS OF CITALOPRAM.
     Route: 065
  2. QUETIAPINE [Suspect]
     Active Substance: QUETIAPINE
     Indication: Product used for unknown indication
     Dosage: 230 TABLETS OF QUETIAPINE 150 MG + 50 BLISTERS OF CITALOPRAM.
     Route: 048
  3. BISOPROLOL FUMARATE [Concomitant]
     Active Substance: BISOPROLOL FUMARATE
     Indication: Product used for unknown indication
     Dosage: BISOPROLOLO 1,25 MG.
     Route: 048
  4. FLURAZEPAM MONOHYDROCHLORIDE [Concomitant]
     Active Substance: FLURAZEPAM MONOHYDROCHLORIDE
     Indication: Product used for unknown indication
     Dosage: UNK
     Route: 048
  5. DULOXETINE [Concomitant]
     Active Substance: DULOXETINE
     Indication: Product used for unknown indication
     Dosage: DULOXETINA 60 MG.
     Route: 065
  6. LITHIUM SULFATE [Concomitant]
     Active Substance: LITHIUM SULFATE
     Indication: Product used for unknown indication
     Dosage: RESILIENT 83 MG.
     Route: 065
  7. LYRICA [Concomitant]
     Active Substance: PREGABALIN
     Indication: Product used for unknown indication
     Dosage: LYRICA 75 MG.
     Route: 048
  8. TAVOR [Concomitant]
     Indication: Product used for unknown indication
     Dosage: TAVOR 2,5 MG.
     Route: 048

REACTIONS (4)
  - Coma [Recovered/Resolved]
  - Intentional product misuse [Recovered/Resolved]
  - Intentional product misuse [Recovered/Resolved]
  - Bezoar [Recovered/Resolved]

NARRATIVE: CASE EVENT DATE: 20220823
